FAERS Safety Report 15254096 (Version 1)
Quarter: 2018Q3

REPORT INFORMATION
  Report Type: Spontaneous
  Country: US (occurrence: US)
  Receive Date: 20180808
  Receipt Date: 20180808
  Transmission Date: 20181010
  Serious: Yes (Life-Threatening, Other)
  Sender: FDA-Public Use
  Company Number: US-ZYDUS-021083

PATIENT
  Age: 4 Week
  Sex: Female
  Weight: 2.24 kg

DRUGS (4)
  1. TOPIRAMATE. [Suspect]
     Active Substance: TOPIRAMATE
     Indication: SEIZURE
     Route: 048
  2. LEVETIRACETAM. [Concomitant]
     Active Substance: LEVETIRACETAM
     Indication: SEIZURE
     Route: 065
  3. FOSPHENYTOIN [Concomitant]
     Active Substance: FOSPHENYTOIN
     Indication: SEIZURE
     Route: 065
  4. TOPIRAMATE. [Suspect]
     Active Substance: TOPIRAMATE
     Indication: SEIZURE
     Route: 048

REACTIONS (4)
  - Haematochezia [Unknown]
  - Abdominal distension [Unknown]
  - Necrotising colitis [Unknown]
  - Pneumatosis [Unknown]
